FAERS Safety Report 25861699 (Version 1)
Quarter: 2025Q3

REPORT INFORMATION
  Report Type: Other
  Country: CA (occurrence: CA)
  Receive Date: 20250930
  Receipt Date: 20250930
  Transmission Date: 20251020
  Serious: Yes (Hospitalization)
  Sender: INTERCEPT PHARMACEUTICALS
  Company Number: CA-INTERCEPT-PM2019001667

PATIENT
  Age: 35 Year
  Sex: Female

DRUGS (14)
  1. OCALIVA [Suspect]
     Active Substance: OBETICHOLIC ACID
     Indication: Primary biliary cholangitis
     Dosage: 5 MG, QD
     Route: 048
     Dates: start: 20190906
  2. OCALIVA [Suspect]
     Active Substance: OBETICHOLIC ACID
     Dosage: 5 MG, QD
     Route: 048
     Dates: start: 2020
  3. OCALIVA [Suspect]
     Active Substance: OBETICHOLIC ACID
     Dosage: 10 MILLIGRAM, QD
     Route: 048
  4. OCALIVA [Suspect]
     Active Substance: OBETICHOLIC ACID
     Route: 048
  5. URSODIOL [Concomitant]
     Active Substance: URSODIOL
  6. RIFAMPIN [Concomitant]
     Active Substance: RIFAMPIN
     Indication: Pruritus
  7. CHOLESTYRAMINE [Concomitant]
     Active Substance: CHOLESTYRAMINE
     Indication: Pruritus
  8. HYDROXYZINE [Concomitant]
     Active Substance: HYDROXYZINE HYDROCHLORIDE
  9. NALTREXONE [Concomitant]
     Active Substance: NALTREXONE
     Dosage: 12.5 MG, QD
  10. AMILORIDE [Concomitant]
     Active Substance: AMILORIDE
     Dosage: 5 MG, QD
  11. PREDNISONE [Concomitant]
     Active Substance: PREDNISONE
     Dosage: 10 MG, QD
  12. PREDNISONE [Concomitant]
     Active Substance: PREDNISONE
     Dosage: 5 MG, QD
  13. MEDROXYPROGESTERONE [Concomitant]
     Active Substance: MEDROXYPROGESTERONE
  14. VITAMIN D NOS [Concomitant]
     Active Substance: CHOLECALCIFEROL\ERGOCALCIFEROL
     Dosage: 2000 IU, QD

REACTIONS (17)
  - Hospitalisation [Unknown]
  - Increased appetite [Not Recovered/Not Resolved]
  - Contusion [Not Recovered/Not Resolved]
  - Blood immunoglobulin A increased [Unknown]
  - Serum ferritin abnormal [Recovered/Resolved]
  - Mean cell volume abnormal [Recovered/Resolved]
  - Mean cell haemoglobin concentration abnormal [Recovered/Resolved]
  - Red cell distribution width abnormal [Recovered/Resolved]
  - Anion gap decreased [Unknown]
  - Blood albumin decreased [Not Recovered/Not Resolved]
  - Haemoglobin increased [Not Recovered/Not Resolved]
  - Red blood cell count increased [Not Recovered/Not Resolved]
  - Blood calcium abnormal [Unknown]
  - Blood potassium decreased [Not Recovered/Not Resolved]
  - Gamma-glutamyltransferase increased [Recovering/Resolving]
  - Aspartate aminotransferase abnormal [Not Recovered/Not Resolved]
  - Blood alkaline phosphatase abnormal [Recovering/Resolving]

NARRATIVE: CASE EVENT DATE: 20190901
